FAERS Safety Report 19690733 (Version 1)
Quarter: 2021Q3

REPORT INFORMATION
  Report Type: Spontaneous
  Country: SE (occurrence: SE)
  Receive Date: 20210812
  Receipt Date: 20210812
  Transmission Date: 20211014
  Serious: Yes (Other)
  Sender: FDA-Public Use
  Company Number: SE-ACCORD-235085

PATIENT
  Age: 67 Year
  Sex: Male
  Weight: 86 kg

DRUGS (11)
  1. JARDIANCE [Concomitant]
     Active Substance: EMPAGLIFLOZIN
     Dosage: 25 MG 1X1
     Route: 048
  2. CAPECITABINE ACCORD [Suspect]
     Active Substance: CAPECITABINE
     Indication: CANCER SURGERY
     Dosage: 300 MG 300 MG 4X2 AND 500 MG 1X2, GIVEN DAY 1?14 IN 21?DAY CYCLES.
     Route: 048
     Dates: start: 20210122, end: 20210413
  3. CAPECITABINE ACCORD [Suspect]
     Active Substance: CAPECITABINE
     Indication: CHEMOTHERAPY
     Dosage: 300 MG 4X2 AND 500 MG 1X2, GIVEN DAY 1?14 IN 21?DAY CYCLES.
     Route: 048
     Dates: start: 20210122, end: 20210413
  4. AMLODIPINE [Concomitant]
     Active Substance: AMLODIPINE BESYLATE
     Dosage: 5 MG 1X1
     Route: 048
  5. PRAMIPEXOLE AUROBINDO [Concomitant]
     Dosage: 0,18 MG 0,5X1
     Route: 048
  6. CAPECITABINE ACCORD [Suspect]
     Active Substance: CAPECITABINE
     Indication: COLON CANCER
  7. ENALAPRIL SANDOZ [Concomitant]
     Active Substance: ENALAPRIL
     Dosage: 10 MG 1X1
  8. INSUMAN BASAL SOLOSTAR [Concomitant]
     Active Substance: INSULIN HUMAN
     Dosage: 100 IE/ML 0E+0E+0E+44E
     Route: 058
  9. XARELTO [Concomitant]
     Active Substance: RIVAROXABAN
     Dosage: 20 MG 1X1
  10. METFORMIN ACTAVIS [Concomitant]
     Active Substance: METFORMIN HYDROCHLORIDE
     Dosage: 500 MG 2X2
  11. OXALIPLATIN ACCORD [Concomitant]
     Active Substance: OXALIPLATIN
     Dosage: 5 MG / ML 260 MG EVERY 21 DAYS
     Route: 042
     Dates: start: 20210122, end: 20210330

REACTIONS (1)
  - Hypertriglyceridaemia [Recovered/Resolved]

NARRATIVE: CASE EVENT DATE: 20210326
